FAERS Safety Report 6174468-7 (Version None)
Quarter: 2009Q2

REPORT INFORMATION
  Report Type: 
  Country: None (occurrence: None)
  Receive Date: 20090430
  Receipt Date: 20080616
  Transmission Date: 20091009
  Serious: No
  Sender: FDA-Public Use
  Company Number: US-ASTRAZENECA-2008UW12252

PATIENT
  Sex: Female
  Weight: 37.7 kg

DRUGS (4)
  1. NEXIUM [Suspect]
     Route: 048
  2. DARVON [Concomitant]
     Indication: DYSPEPSIA
  3. LIPITOR [Concomitant]
  4. LORAZEPAM [Concomitant]

REACTIONS (1)
  - MUSCULOSKELETAL PAIN [None]
